FAERS Safety Report 4723381-8 (Version None)
Quarter: 2005Q3

REPORT INFORMATION
  Report Type: 
  Country: None (occurrence: None)
  Receive Date: 20050719
  Receipt Date: 20041022
  Transmission Date: 20060218
  Serious: Yes (Hospitalization)
  Sender: FDA-Public Use
  Company Number: 206731

PATIENT
  Age: 71 Year
  Sex: Female
  Weight: 87.0906 kg

DRUGS (10)
  1. AVONEX [Suspect]
     Indication: MULTIPLE SCLEROSIS
     Dosage: 15 UG; QW; IM;  30 UG; QW; IM
     Route: 030
     Dates: start: 20040901, end: 20040901
  2. AVONEX [Suspect]
     Indication: MULTIPLE SCLEROSIS
     Dosage: 15 UG; QW; IM;  30 UG; QW; IM
     Route: 030
     Dates: start: 20040901, end: 20041001
  3. BLOOD PRESSURE MEDICATION (NOS) [Concomitant]
  4. SYNTHROID [Concomitant]
  5. DITROPAN XL [Concomitant]
  6. VITAMIN D [Concomitant]
  7. OIL OF PRIMROSE [Concomitant]
  8. LIPITOR [Concomitant]
  9. VITAMIN E [Concomitant]
  10. ASPIRIN [Concomitant]

REACTIONS (7)
  - ASTHENIA [None]
  - DIFFICULTY IN WALKING [None]
  - FALL [None]
  - HEADACHE [None]
  - INJECTION SITE CELLULITIS [None]
  - NAUSEA [None]
  - POLLAKIURIA [None]
